FAERS Safety Report 13228999 (Version 3)
Quarter: 2017Q4

REPORT INFORMATION
  Report Type: Report from Study
  Country: ES (occurrence: ES)
  Receive Date: 20170213
  Receipt Date: 20171027
  Transmission Date: 20180320
  Serious: Yes (Death, Life-Threatening)
  Sender: FDA-Public Use
  Company Number: ES-AMGEN-ESPCT2015139559

PATIENT
  Age: 12 Year
  Sex: Female
  Weight: 54.6 kg

DRUGS (36)
  1. ETHINYLESTRADIOL [Concomitant]
     Active Substance: ETHINYL ESTRADIOL
     Dosage: 5 MG, UNK
     Route: 048
     Dates: start: 20150723, end: 20151203
  2. VITAMIN K [Concomitant]
     Active Substance: PHYTONADIONE
     Dosage: 10 MG, UNK
     Route: 042
     Dates: start: 20151224, end: 20160108
  3. KETAMINA [Concomitant]
     Dosage: 50MG-10G, UNK
     Route: 042
     Dates: start: 20151221, end: 20151229
  4. GLUCOSALINE [Concomitant]
     Dosage: 500 ML, UNK
     Route: 042
     Dates: start: 20151204, end: 20160109
  5. CHLORIDE [Concomitant]
     Active Substance: CHLORIDE ION
     Dosage: UNK
     Route: 042
     Dates: start: 20151204, end: 20151218
  6. MORPHINE [Concomitant]
     Active Substance: MORPHINE
     Dosage: UNK
     Route: 042
     Dates: start: 20151204, end: 20151218
  7. PARACETAMOL [Concomitant]
     Active Substance: ACETAMINOPHEN
     Dosage: 750 MG, UNK
     Route: 048
     Dates: start: 20151201, end: 20160108
  8. TRIMETHOPRIM. [Concomitant]
     Active Substance: TRIMETHOPRIM
     Dosage: 160 MG, UNK
     Route: 042
     Dates: start: 20151202, end: 20160108
  9. VANCOMYCIN [Concomitant]
     Active Substance: VANCOMYCIN
     Dosage: 500 MG, UNK
     Route: 042
     Dates: start: 20151202, end: 20151204
  10. AMLODIPINE [Concomitant]
     Active Substance: AMLODIPINE BESYLATE
     Dosage: 5 MG, UNK
     Route: 048
     Dates: start: 20151212, end: 20151224
  11. MEROPENEM. [Concomitant]
     Active Substance: MEROPENEM
     Dosage: 800 MG - 1 GM, UNK
     Dates: start: 20151202, end: 20160108
  12. METRONIDAZOL [Concomitant]
     Active Substance: METRONIDAZOLE
     Dosage: 500 MG, UNK
     Route: 042
     Dates: start: 20151204, end: 20160104
  13. METAMIZOLE [Concomitant]
     Active Substance: METAMIZOLE
     Dosage: 2 G, UNK
     Route: 048
     Dates: start: 20151124, end: 20160108
  14. FUROSEMIDE. [Concomitant]
     Active Substance: FUROSEMIDE
     Dosage: 20-350 MG, UNK
     Route: 042
     Dates: start: 20151126, end: 20160108
  15. ACICLOVIR [Concomitant]
     Active Substance: ACYCLOVIR
     Dosage: 750 MUG, UNK
     Route: 048
     Dates: start: 20151210, end: 20160108
  16. RASBURICASE [Concomitant]
     Active Substance: RASBURICASE
     Dosage: 7.5 MG, UNK
     Route: 042
     Dates: start: 20151208, end: 20151208
  17. FENTANILO [Concomitant]
     Active Substance: FENTANYL
     Dosage: 40 UNK, UNK AND 2400 MCG TO 2400 MG, UNK
     Route: 042
     Dates: start: 20151219, end: 20160109
  18. DEXCHLORPHENIRAMINE [Concomitant]
     Active Substance: DEXCHLORPHENIRAMINE
     Dosage: 5 MG, UNK
     Route: 042
     Dates: start: 20151207, end: 20160108
  19. VINCRISTINE [Concomitant]
     Active Substance: VINCRISTINE
     Dosage: 2 MG, PER CHEMO REGIM
     Dates: start: 20151216, end: 20151223
  20. CEFEPIME [Concomitant]
     Active Substance: CEFEPIME HYDROCHLORIDE
     Dosage: 2 G, UNK
     Route: 042
     Dates: start: 20151129, end: 20151225
  21. TEICOPLANINA [Concomitant]
     Active Substance: TEICOPLANIN
     Dosage: 200 MG, UNK
     Route: 042
     Dates: start: 20151218, end: 20151224
  22. LORAZEPAM. [Concomitant]
     Active Substance: LORAZEPAM
     Dosage: 0.5 MG, UNK
     Route: 048
     Dates: start: 20151203, end: 20160108
  23. AMIKACIN [Concomitant]
     Active Substance: AMIKACIN
     Dosage: 750-800 MG, UNK
     Dates: start: 20151202, end: 20160106
  24. DIAZEPAM. [Concomitant]
     Active Substance: DIAZEPAM
     Dosage: 2.5-5 MG, UNK
     Route: 048
     Dates: start: 20151213, end: 20160107
  25. CARFILZOMIB [Suspect]
     Active Substance: CARFILZOMIB
     Indication: ACUTE LYMPHOCYTIC LEUKAEMIA
     Dosage: 42.1 MG, PER CHEMO REGIM
     Route: 042
     Dates: start: 20151130, end: 20151201
  26. HIDROCORTISONA [Concomitant]
     Active Substance: HYDROCORTISONE
     Dosage: 50 MG/M2, UNK
     Route: 042
     Dates: start: 20151218, end: 20160108
  27. SULFAMETOXAZOL [Concomitant]
     Active Substance: SULFAMETHOXAZOLE
     Dosage: 800 MG, UNK
     Route: 048
     Dates: start: 20151202, end: 20160108
  28. DEXAMETHASONE. [Suspect]
     Active Substance: DEXAMETHASONE
     Indication: ACUTE LYMPHOCYTIC LEUKAEMIA
     Dosage: 5-15.5 MG, PER CHEMO REGIM
     Route: 065
     Dates: start: 20151130, end: 20151225
  29. ONDANSETRON [Concomitant]
     Active Substance: ONDANSETRON
     Dosage: 8 MG, UNK
     Route: 042
     Dates: start: 20151125, end: 20160109
  30. POLARAMINE [Concomitant]
     Active Substance: DEXCHLORPHENIRAMINE MALEATE
     Dosage: 5 G, UNK
     Route: 042
     Dates: start: 20151207, end: 20151208
  31. OMEPRAZOL [Concomitant]
     Active Substance: OMEPRAZOLE
     Dosage: 20 MG, UNK
     Route: 042
     Dates: start: 20151202, end: 20160108
  32. METHOTREXATE. [Concomitant]
     Active Substance: METHOTREXATE
     Dosage: 15.6 MG, UNK
     Dates: start: 20151207, end: 20151207
  33. MITOXANTRONE [Suspect]
     Active Substance: MITOXANTRONE HYDROCHLORIDE
     Indication: ACUTE LYMPHOCYTIC LEUKAEMIA
     Dosage: 15.6 MG, PER CHEMO REGIM
     Route: 065
     Dates: start: 20151207, end: 20151208
  34. LIDOCAINE. [Concomitant]
     Active Substance: LIDOCAINE
     Dosage: 1 UNK, UNK
     Route: 061
     Dates: start: 20151214, end: 20160108
  35. AMPHOTERICIN B. [Concomitant]
     Active Substance: AMPHOTERICIN B
     Dosage: 50-160 MG, UNK AND 160 MG/M2, UNK
     Route: 048
     Dates: start: 20151203, end: 20160107
  36. ALBUMIN [Concomitant]
     Active Substance: ALBUMIN HUMAN
     Dosage: 30 UNK, UNK
     Route: 042
     Dates: start: 20151222, end: 20160105

REACTIONS (2)
  - Multiple organ dysfunction syndrome [Fatal]
  - Sepsis [Recovered/Resolved]

NARRATIVE: CASE EVENT DATE: 20151225
